FAERS Safety Report 12550545 (Version 1)
Quarter: 2016Q3

REPORT INFORMATION
  Report Type: Spontaneous
  Country: US (occurrence: US)
  Receive Date: 20160712
  Receipt Date: 20160712
  Transmission Date: 20161109
  Serious: No
  Sender: FDA-Public Use
  Company Number: US-BEH-2016070980

PATIENT
  Sex: Male
  Weight: 88.44 kg

DRUGS (20)
  1. SODIUM CHLORIDE. [Concomitant]
     Active Substance: SODIUM CHLORIDE
  2. ZEMAIRA [Suspect]
     Active Substance: .ALPHA.1-PROTEINASE INHIBITOR HUMAN
     Indication: IMMUNODEFICIENCY COMMON VARIABLE
     Dosage: 60 MG/KG, QW
     Route: 042
  3. CENTRUM SILVER                     /02363801/ [Concomitant]
     Active Substance: MINERALS\VITAMINS
  4. SINGULAIR [Concomitant]
     Active Substance: MONTELUKAST SODIUM
  5. FLONASE [Concomitant]
     Active Substance: FLUTICASONE PROPIONATE
  6. LMX                                /00033401/ [Concomitant]
  7. VITAMIN B12 [Concomitant]
     Active Substance: CYANOCOBALAMIN
  8. GABAPENTIN. [Concomitant]
     Active Substance: GABAPENTIN
  9. VALIUM [Concomitant]
     Active Substance: DIAZEPAM
  10. ULTRAM [Concomitant]
     Active Substance: TRAMADOL HYDROCHLORIDE
  11. XOPENEX [Concomitant]
     Active Substance: LEVALBUTEROL HYDROCHLORIDE
  12. DIPHENHYDRAMINE. [Concomitant]
     Active Substance: DIPHENHYDRAMINE
  13. OMEPRAZOLE. [Concomitant]
     Active Substance: OMEPRAZOLE
  14. BREO ELLIPTA [Concomitant]
     Active Substance: FLUTICASONE FUROATE\VILANTEROL TRIFENATATE
  15. AMOXICILLIN. [Concomitant]
     Active Substance: AMOXICILLIN
  16. ACETAMINOPHEN. [Concomitant]
     Active Substance: ACETAMINOPHEN
  17. VITAMIN D3 [Concomitant]
     Active Substance: CHOLECALCIFEROL
  18. EPIPEN [Concomitant]
     Active Substance: EPINEPHRINE
  19. CLARITHROMYCIN. [Concomitant]
     Active Substance: CLARITHROMYCIN
  20. VITAMIN A                          /00056001/ [Concomitant]
     Active Substance: RETINOL

REACTIONS (2)
  - Upper respiratory tract infection [Unknown]
  - Eye infection [Unknown]
